FAERS Safety Report 14438170 (Version 1)
Quarter: 2018Q1

REPORT INFORMATION
  Report Type: Spontaneous
  Country: ES (occurrence: ES)
  Receive Date: 20180125
  Receipt Date: 20180125
  Transmission Date: 20180509
  Serious: Yes (Life-Threatening, Hospitalization)
  Sender: FDA-Public Use
  Company Number: ES-AUROBINDO-AUR-APL-2018-003338

PATIENT
  Age: 45 Year
  Sex: Male

DRUGS (9)
  1. DIAZEPAM. [Suspect]
     Active Substance: DIAZEPAM
     Indication: PRODUCT USED FOR UNKNOWN INDICATION
     Dosage: 50 COMPRIMIDOS
     Route: 048
     Dates: start: 20161123, end: 20161123
  2. VENLAFAXINA                        /01233801/ [Suspect]
     Active Substance: VENLAFAXINE HYDROCHLORIDE
     Indication: PRODUCT USED FOR UNKNOWN INDICATION
     Dosage: 24 COMPRIMIDOS DE 75 MG
     Route: 048
     Dates: start: 20161123, end: 20161123
  3. PARACETAMOL TABLET [Suspect]
     Active Substance: ACETAMINOPHEN
     Indication: PRODUCT USED FOR UNKNOWN INDICATION
     Dosage: 80 COMPRIMIDOS
     Dates: start: 20161123, end: 20161123
  4. TRANKIMAZIN [Suspect]
     Active Substance: ALPRAZOLAM
     Indication: PRODUCT USED FOR UNKNOWN INDICATION
     Dosage: 10 COMPRIMIDOS
     Route: 048
     Dates: start: 20161123, end: 20161123
  5. LEXATIN                            /00424801/ [Suspect]
     Active Substance: BROMAZEPAM
     Dosage: 30 COMPRIMIDOS
     Route: 048
     Dates: start: 20161123, end: 20161123
  6. ORFIDAL [Suspect]
     Active Substance: LORAZEPAM
     Indication: PRODUCT USED FOR UNKNOWN INDICATION
     Dosage: 50 COMPRIMIDOS
     Route: 048
     Dates: start: 20161123, end: 20161123
  7. DAPAROX                            /00830802/ [Suspect]
     Active Substance: PAROXETINE HYDROCHLORIDE
     Indication: PRODUCT USED FOR UNKNOWN INDICATION
     Dosage: 56 COMPRIMIDOS
     Route: 048
     Dates: start: 20161123, end: 20161123
  8. DEPRAX /00447702/ [Suspect]
     Active Substance: TRAZODONE HYDROCHLORIDE
     Indication: PRODUCT USED FOR UNKNOWN INDICATION
     Dosage: 32 COMPRIMIDOS
     Route: 048
     Dates: start: 20161123, end: 20161123
  9. IBUPROFEN FILM-COATED TABLET [Suspect]
     Active Substance: IBUPROFEN
     Indication: PRODUCT USED FOR UNKNOWN INDICATION
     Dosage: 60 COMPRIMIDOS
     Route: 048
     Dates: start: 20161123, end: 20161123

REACTIONS (2)
  - Suicide attempt [Recovered/Resolved]
  - Altered state of consciousness [Recovered/Resolved]

NARRATIVE: CASE EVENT DATE: 20161123
